FAERS Safety Report 7653343-2 (Version None)
Quarter: 2011Q3

REPORT INFORMATION
  Report Type: 
  Country: None (occurrence: None)
  Receive Date: 20110803
  Receipt Date: 20110728
  Transmission Date: 20111222
  Serious: Yes (Hospitalization)
  Sender: FDA-Public Use
  Company Number: JP-B.I. PHARMACEUTICALS,INC./RIDGEFIELD-2011-BP-18664NB

PATIENT
  Age: 65 Year
  Sex: Male

DRUGS (4)
  1. CARVEDILOL [Concomitant]
     Indication: CARDIAC FAILURE
     Route: 048
  2. ALDACTONE [Concomitant]
     Indication: CARDIAC FAILURE
     Route: 048
  3. PRADAXA [Suspect]
     Indication: ATRIAL FIBRILLATION
     Dosage: 220 MG
     Route: 048
     Dates: start: 20110301, end: 20110728
  4. LASIX [Concomitant]
     Indication: CARDIAC FAILURE
     Route: 048

REACTIONS (4)
  - GOUT [None]
  - GINGIVAL BLEEDING [None]
  - THROMBOCYTOPENIA [None]
  - PYREXIA [None]
